FAERS Safety Report 9229938 (Version 1)
Quarter: 2013Q2

REPORT INFORMATION
  Report Type: Spontaneous
  Country: US (occurrence: US)
  Receive Date: 20130415
  Receipt Date: 20130415
  Transmission Date: 20140414
  Serious: No
  Sender: FDA-Public Use
  Company Number: US-009507513-1304USA006366

PATIENT
  Sex: Female

DRUGS (1)
  1. NUVARING [Suspect]
     Indication: ENDOMETRIOSIS
     Dosage: CONTINUOSLY
     Route: 067
     Dates: start: 201301, end: 20130404

REACTIONS (5)
  - Vaginal discharge [Unknown]
  - Alopecia [Unknown]
  - Abdominal distension [Unknown]
  - Dizziness [Unknown]
  - Headache [Unknown]
